FAERS Safety Report 7837665 (Version 3)
Quarter: 2014Q2

REPORT INFORMATION
  Report Type: Spontaneous
  Country: US (occurrence: US)
  Receive Date: 20110302
  Receipt Date: 20131024
  Transmission Date: 20141212
  Serious: Yes (Hospitalization, Other)
  Sender: FDA-Public Use
  Company Number: US-PFIZER INC-2009276397

PATIENT
  Age: 44 Year
  Sex: Female

DRUGS (1)
  1. DILANTIN [Suspect]
     Indication: CONVULSION
     Dosage: 300 MG, DAILY
     Route: 048
     Dates: start: 20071121, end: 20071226

REACTIONS (1)
  - Stevens-Johnson syndrome [Unknown]
